FAERS Safety Report 5671160-X (Version None)
Quarter: 2008Q1

REPORT INFORMATION
  Report Type: 
  Country: None (occurrence: None)
  Receive Date: 20080318
  Receipt Date: 20080306
  Transmission Date: 20080703
  Serious: Yes (Hospitalization, Other)
  Sender: FDA-Public Use
  Company Number: US-ELI_LILLY_AND_COMPANY-US200802001996

PATIENT
  Sex: Female
  Weight: 75.737 kg

DRUGS (9)
  1. CYMBALTA [Suspect]
     Indication: DEPRESSION
     Dosage: 60 MG, UNK
     Dates: start: 20070901
  2. CYMBALTA [Suspect]
     Dosage: 30 MG, DAILY (1/D)
     Dates: end: 20080208
  3. CYMBALTA [Suspect]
     Dosage: 30 MG, QOD
     Dates: start: 20080209, end: 20080215
  4. CYMBALTA [Suspect]
     Dosage: 30 MG, OTHER
     Dates: start: 20080216, end: 20080221
  5. CLARITIN [Concomitant]
     Dosage: 10 MG, UNK
  6. ACYCLOVIR [Concomitant]
     Indication: ORAL HERPES
     Dosage: 400 MG, DAILY (1/D)
  7. WARFARIN SODIUM [Concomitant]
     Indication: CARDIAC DISORDER
     Dosage: 10 MG, UNK
  8. KLONOPIN [Concomitant]
     Dosage: 0.5 MG, AS NEEDED
  9. RESTORIL [Concomitant]
     Indication: SLEEP DISORDER
     Dosage: 1 D/F, AS NEEDED

REACTIONS (11)
  - ALANINE AMINOTRANSFERASE INCREASED [None]
  - ASTHENIA [None]
  - ATRIAL FIBRILLATION [None]
  - BLOOD CHOLESTEROL INCREASED [None]
  - BLOOD TRIGLYCERIDES INCREASED [None]
  - CARDIAC FAILURE CONGESTIVE [None]
  - DYSPNOEA [None]
  - HEPATIC ENZYME INCREASED [None]
  - IRRITABILITY [None]
  - NAUSEA [None]
  - WEIGHT INCREASED [None]
